FAERS Safety Report 26179873 (Version 1)
Quarter: 2025Q4

REPORT INFORMATION
  Report Type: Spontaneous
  Country: CN (occurrence: CN)
  Receive Date: 20251219
  Receipt Date: 20251219
  Transmission Date: 20260118
  Serious: Yes (Hospitalization)
  Sender: KOWA PHARM
  Company Number: CN-CNKOWA-ICSRLIV202512001

PATIENT
  Age: 57 Year
  Sex: Female

DRUGS (1)
  1. LIVALO [Suspect]
     Active Substance: PITAVASTATIN CALCIUM
     Indication: Low density lipoprotein increased
     Dosage: 1 DF, QD
     Route: 048
     Dates: start: 20250926, end: 20251208

REACTIONS (3)
  - Hepatic pain [Unknown]
  - Alanine aminotransferase increased [Unknown]
  - Gamma-glutamyltransferase increased [Unknown]

NARRATIVE: CASE EVENT DATE: 20251128
